FAERS Safety Report 7622244-8 (Version None)
Quarter: 2011Q3

REPORT INFORMATION
  Report Type: 
  Country: None (occurrence: None)
  Receive Date: 20110720
  Receipt Date: 20110712
  Transmission Date: 20111222
  Serious: Yes (Hospitalization)
  Sender: FDA-Public Use
  Company Number: CA-BRISTOL-MYERS SQUIBB COMPANY-15823016

PATIENT
  Age: 66 Year
  Sex: Male
  Weight: 75 kg

DRUGS (14)
  1. SILVER NITRATE [Concomitant]
     Route: 065
     Dates: start: 20110512
  2. FLUOROURACIL [Suspect]
     Indication: HEAD AND NECK CANCER
     Route: 042
     Dates: start: 20110519, end: 20110523
  3. CODEINE SULFATE [Concomitant]
     Indication: PROPHYLAXIS
     Dosage: SYRUP
     Route: 048
     Dates: start: 20110505, end: 20110510
  4. DEXAMETHASONE [Concomitant]
     Indication: PROPHYLAXIS
     Dosage: 20-21MAY(1D).19MAY2011.AND26MAY2011
     Route: 042
     Dates: start: 20110519, end: 20110526
  5. TAMSULOSIN HCL [Concomitant]
     Indication: BENIGN PROSTATIC HYPERPLASIA
     Route: 065
     Dates: start: 20100706
  6. CARBOPLATIN [Suspect]
     Indication: HEAD AND NECK CANCER
     Route: 042
     Dates: start: 20110519, end: 20110519
  7. LEVOTHYROXINE SODIUM [Concomitant]
     Indication: HYPOTHYROIDISM
     Route: 065
     Dates: start: 20110311
  8. DIPHENHYDRAMINE HCL [Concomitant]
     Dosage: 19MAY2011,26MAY2011,02JUN2011.
     Route: 042
     Dates: start: 20110519, end: 20110602
  9. DEXAMETHASONE [Concomitant]
     Route: 042
     Dates: start: 20110602, end: 20110602
  10. GRANISETRON [Concomitant]
     Route: 042
     Dates: start: 20110519, end: 20110519
  11. CETUXIMAB [Suspect]
     Indication: HEAD AND NECK CANCER
     Dosage: ON 02-JUN-2011 THIRD AND MOST RECENT INFUSION 465MG
     Dates: start: 20110519
  12. ACETAMINOPHEN [Concomitant]
     Indication: PROPHYLAXIS
     Route: 065
     Dates: start: 20110510
  13. PROCHLORPERAZINE TAB [Concomitant]
     Indication: NAUSEA
     Route: 065
     Dates: start: 20110520, end: 20110614
  14. MINOCYCLINE HCL [Concomitant]
     Indication: RASH
     Route: 065
     Dates: start: 20110526

REACTIONS (1)
  - LARYNGEAL HAEMORRHAGE [None]
